FAERS Safety Report 10812252 (Version 3)
Quarter: 2015Q1

REPORT INFORMATION
  Report Type: Spontaneous
  Country: US (occurrence: US)
  Receive Date: 20150218
  Receipt Date: 20150305
  Transmission Date: 20150721
  Serious: Yes (Death, Other)
  Sender: FDA-Public Use
  Company Number: US-009507513-1502USA004139

PATIENT
  Age: 56 Year
  Sex: Male

DRUGS (1)
  1. TEMODAR [Suspect]
     Active Substance: TEMOZOLOMIDE
     Dosage: UNK
     Dates: start: 20141222, end: 20150205

REACTIONS (6)
  - Cardiac arrest [Fatal]
  - Dyspnoea [Fatal]
  - Apnoea [Fatal]
  - Ventricular fibrillation [Fatal]
  - Pulmonary embolism [Fatal]
  - Pulse absent [Fatal]

NARRATIVE: CASE EVENT DATE: 20150207
